FAERS Safety Report 6329736-2 (Version None)
Quarter: 2009Q3

REPORT INFORMATION
  Report Type: 
  Country: None (occurrence: None)
  Receive Date: 20090826
  Receipt Date: 20090819
  Transmission Date: 20100115
  Serious: Yes (Other)
  Sender: FDA-Public Use
  Company Number: GB-PFIZER INC-2009256629

PATIENT
  Age: 61 Year

DRUGS (5)
  1. LIPITOR [Suspect]
     Indication: TRANSIENT ISCHAEMIC ATTACK
     Dosage: 20 MG, UNK
     Route: 048
     Dates: start: 20081001, end: 20090515
  2. CLOPIDOGREL [Concomitant]
     Indication: TRANSIENT ISCHAEMIC ATTACK
     Dosage: 75 MG, UNK
     Route: 048
     Dates: start: 20080701
  3. DEPAKOTE [Concomitant]
     Indication: BIPOLAR I DISORDER
     Dosage: 250 MG, UNK
     Route: 048
     Dates: start: 20080701
  4. LANSOPRAZOLE [Concomitant]
     Indication: OESOPHAGITIS
     Dosage: 30 MG, UNK
     Route: 048
     Dates: start: 20080701
  5. PERINDOPRIL [Concomitant]
     Indication: HYPERTENSION
     Dosage: 2 MG, UNK
     Route: 048
     Dates: start: 20080701

REACTIONS (1)
  - BALLISMUS [None]
